FAERS Safety Report 8990890 (Version 1)
Quarter: 2012Q4

REPORT INFORMATION
  Report Type: Spontaneous
  Country: CA (occurrence: None)
  Receive Date: 20121221
  Receipt Date: 20121221
  Transmission Date: 20130627
  Serious: Yes (Death)
  Sender: FDA-Public Use
  Company Number: DSA_61482_2012

PATIENT
  Age: 47 Year
  Sex: Female

DRUGS (2)
  1. WELLBUTRIN [Suspect]
     Dates: start: 2012, end: 20120506
  2. WELLBUTRIN [Suspect]
     Dates: start: 2012, end: 20120506

REACTIONS (1)
  - Completed suicide [None]
